FAERS Safety Report 9508270 (Version 1)
Quarter: 2013Q3

REPORT INFORMATION
  Report Type: Spontaneous
  Country: US (occurrence: US)
  Receive Date: 20130909
  Receipt Date: 20130909
  Transmission Date: 20140515
  Serious: No
  Sender: FDA-Public Use
  Company Number: US-PFIZER INC-2013256545

PATIENT
  Sex: 0

DRUGS (3)
  1. MOTRIN IB [Suspect]
     Indication: BACK PAIN
     Dosage: UNK
     Route: 048
  2. RESTASIS [Interacting]
     Dosage: UNK
  3. CORTICOSTEROID NOS [Interacting]
     Dosage: UNK

REACTIONS (1)
  - Drug interaction [Unknown]
